FAERS Safety Report 23187983 (Version 1)
Quarter: 2023Q4

REPORT INFORMATION
  Report Type: Spontaneous
  Country: US (occurrence: US)
  Receive Date: 20231115
  Receipt Date: 20231115
  Transmission Date: 20240109
  Serious: No
  Sender: FDA-Public Use
  Company Number: US-TEVA-2023-US-2941516

PATIENT
  Sex: Female

DRUGS (1)
  1. CAMRESE [Suspect]
     Active Substance: ETHINYL ESTRADIOL\LEVONORGESTREL
     Indication: Contraception
     Dosage: STRENGTH: 0.15 MG / 0.03 MG / 0.01 MG
     Route: 065
     Dates: start: 2008

REACTIONS (4)
  - Hot flush [Unknown]
  - Affective disorder [Unknown]
  - Acne [Unknown]
  - Product quality issue [Unknown]

NARRATIVE: CASE EVENT DATE: 20230101
